FAERS Safety Report 11661566 (Version 1)
Quarter: 2015Q4

REPORT INFORMATION
  Report Type: Spontaneous
  Country: US (occurrence: US)
  Receive Date: 20151026
  Receipt Date: 20151026
  Transmission Date: 20160304
  Serious: Yes (Other)
  Sender: FDA-Public Use
  Company Number: US-BAYER-2015-446563

PATIENT
  Sex: Female

DRUGS (2)
  1. MOTRIN [Concomitant]
     Active Substance: IBUPROFEN
     Dosage: UNK
  2. CIPRO [Suspect]
     Active Substance: CIPROFLOXACIN HYDROCHLORIDE

REACTIONS (9)
  - Feeding disorder [None]
  - Arthralgia [None]
  - Hypoaesthesia [None]
  - Feeling abnormal [None]
  - Gait disturbance [None]
  - Gastrointestinal pain [None]
  - Pain [None]
  - Abdominal pain upper [None]
  - Dyspepsia [None]
